FAERS Safety Report 5646482-9 (Version None)
Quarter: 2008Q1

REPORT INFORMATION
  Report Type: 
  Country: None (occurrence: None)
  Receive Date: 20080227
  Receipt Date: 20080131
  Transmission Date: 20080703
  Serious: Yes (Death)
  Sender: FDA-Public Use
  Company Number: MSTR-NO-0802S-0003

PATIENT
  Age: 87 Year
  Sex: Male

DRUGS (1)
  1. METASTRON [Suspect]
     Indication: METASTATIC PAIN
     Dosage: 90.1 MBQ, SINGLE GOSE, I.V.
     Route: 042
     Dates: start: 20071204, end: 20071204

REACTIONS (1)
  - DEATH [None]
